FAERS Safety Report 17999481 (Version 1)
Quarter: 2020Q3

REPORT INFORMATION
  Report Type: Spontaneous
  Country: FR (occurrence: FR)
  Receive Date: 20200709
  Receipt Date: 20200709
  Transmission Date: 20201103
  Serious: Yes (Other)
  Sender: FDA-Public Use
  Company Number: NVSC2020FR190801

PATIENT
  Age: 72 Year
  Sex: Male
  Weight: 118 kg

DRUGS (15)
  1. ZITHROMAX [Suspect]
     Active Substance: AZITHROMYCIN DIHYDRATE
     Indication: PNEUMONIA
     Dosage: 1 DF, QD
     Route: 048
     Dates: start: 20200325, end: 20200327
  2. VENTOLINE [Suspect]
     Active Substance: ALBUTEROL
     Indication: BRONCHOSPASM
     Dosage: 1 DF, QD
     Route: 055
     Dates: start: 20200326, end: 20200326
  3. ATORVASTATINE ARROW [Suspect]
     Active Substance: ATORVASTATIN
     Indication: DYSLIPIDAEMIA
     Dosage: 1 DF, QD
     Route: 048
     Dates: end: 20200324
  4. AMIKACINE [Suspect]
     Active Substance: AMIKACIN
     Indication: SEPSIS
     Dosage: 1 G, ONCE/SINGLE
     Route: 042
     Dates: start: 20200326, end: 20200326
  5. INNOHEP [Suspect]
     Active Substance: TINZAPARIN SODIUM
     Indication: PULMONARY EMBOLISM
     Dosage: 1 DF, ONCE/SINGLE
     Route: 058
     Dates: start: 20200326, end: 20200326
  6. ULTIBRO BREEZHALER [Suspect]
     Active Substance: GLYCOPYRRONIUM\INDACATEROL
     Indication: BRONCHOSPASM
     Dosage: 1 DF, QD
     Route: 055
     Dates: start: 20200326, end: 20200327
  7. ALLOPURINOL. [Suspect]
     Active Substance: ALLOPURINOL
     Indication: GOUT
     Dosage: 1 DF, QD
     Route: 048
     Dates: start: 20200325, end: 20200327
  8. SPIRONOLACTONE ARROW [Suspect]
     Active Substance: SPIRONOLACTONE
     Indication: CARDIAC FAILURE
     Dosage: 1 DF, QD
     Route: 048
     Dates: start: 20200326, end: 20200327
  9. FUROSEMIDE. [Suspect]
     Active Substance: FUROSEMIDE
     Indication: CARDIAC FAILURE
     Dosage: UNK
     Route: 048
     Dates: end: 20200326
  10. KALETRA [Suspect]
     Active Substance: LOPINAVIR\RITONAVIR
     Indication: COVID-19 PNEUMONIA
     Dosage: 4 DF, QD
     Route: 048
     Dates: start: 20200325, end: 20200327
  11. CEFOTAXIME [Suspect]
     Active Substance: CEFOTAXIME SODIUM
     Indication: PNEUMONIA
     Dosage: 3 DF, QD
     Route: 042
     Dates: start: 20200324
  12. PANTOPRAZOLE MYLAN [Suspect]
     Active Substance: PANTOPRAZOLE SODIUM
     Indication: PRODUCT USED FOR UNKNOWN INDICATION
     Dosage: UNK
     Route: 048
     Dates: end: 20200327
  13. BISOPROLOL SANDOZ 10 MG ? FILMTABLETTEN [Suspect]
     Active Substance: BISOPROLOL FUMARATE
     Indication: MYOCARDIAL ISCHAEMIA
     Dosage: 1 DF, QD
     Route: 048
     Dates: start: 20200325, end: 20200327
  14. SPIRIVA [Suspect]
     Active Substance: TIOTROPIUM BROMIDE MONOHYDRATE
     Indication: CHRONIC OBSTRUCTIVE PULMONARY DISEASE
     Dosage: 1 DF, QD
     Route: 055
     Dates: end: 20200327
  15. ACIDE FOLIQUE [Suspect]
     Active Substance: FOLIC ACID
     Indication: VITAMIN SUPPLEMENTATION
     Dosage: 1 DF, QD
     Route: 048
     Dates: start: 20200325, end: 20200327

REACTIONS (2)
  - Rhabdomyolysis [Not Recovered/Not Resolved]
  - Acute kidney injury [Not Recovered/Not Resolved]

NARRATIVE: CASE EVENT DATE: 20200327
